FAERS Safety Report 4595427-1 (Version None)
Quarter: 2005Q1

REPORT INFORMATION
  Report Type: 
  Country: None (occurrence: None)
  Receive Date: 20050224
  Receipt Date: 20050205
  Transmission Date: 20050727
  Serious: Yes (Other)
  Sender: FDA-Public Use
  Company Number: EWC050142310

PATIENT
  Age: 37 Year
  Sex: Female
  Weight: 40 kg

DRUGS (2)
  1. GEMCITABINE HYDROCHLORIDE-IV (GEMCITABINE) [Suspect]
     Indication: LUNG SQUAMOUS CELL CARCINOMA STAGE UNSPECIFIED
     Dosage: 1.2 G/2 OTHER
     Dates: start: 20050103, end: 20050103
  2. CISPLATIN [Concomitant]

REACTIONS (2)
  - CONVULSION [None]
  - METASTASES TO CENTRAL NERVOUS SYSTEM [None]
